FAERS Safety Report 17099324 (Version 1)
Quarter: 2019Q4

REPORT INFORMATION
  Report Type: Spontaneous
  Country: US (occurrence: US)
  Receive Date: 20191201
  Receipt Date: 20191201
  Transmission Date: 20200122
  Serious: No
  Sender: FDA-Public Use
  Company Number: None

PATIENT
  Age: 59 Year
  Sex: Male
  Weight: 85.5 kg

DRUGS (1)
  1. LOSARTAN POTASSIOUM TABLETS USP 100 MG [Suspect]
     Active Substance: LOSARTAN POTASSIUM
     Indication: BLOOD PRESSURE INCREASED
     Dosage: ?          QUANTITY:1 TABLET(S);?
     Route: 048
     Dates: start: 20190618, end: 20190830

REACTIONS (4)
  - Pancreatic cyst [None]
  - Interstitial lung disease [None]
  - Pancreatitis [None]
  - Back pain [None]

NARRATIVE: CASE EVENT DATE: 20190801
